FAERS Safety Report 23734246 (Version 1)
Quarter: 2024Q2

REPORT INFORMATION
  Report Type: Spontaneous
  Country: US (occurrence: US)
  Receive Date: 20240412
  Receipt Date: 20240412
  Transmission Date: 20240716
  Serious: No
  Sender: FDA-Public Use
  Company Number: US-CIPLA LTD.-2023US05290

PATIENT

DRUGS (4)
  1. NABUMETONE [Suspect]
     Active Substance: NABUMETONE
     Indication: Rheumatoid arthritis
     Dosage: UNK, TWO TABLETS (1500 MILLIGRAM) A DAY
     Route: 048
     Dates: start: 202110
  2. NABUMETONE [Suspect]
     Active Substance: NABUMETONE
     Dosage: UNK, ONE TABLET (750 MILLIGRAM) A DAY
     Route: 048
  3. ATORVASTATIN [Concomitant]
     Active Substance: ATORVASTATIN
     Indication: Phlebolith
     Dosage: UNK, ONE TABLET (10 MG) A DAY
     Route: 065
     Dates: start: 202308
  4. ASPIRIN [Concomitant]
     Active Substance: ASPIRIN
     Indication: Coagulopathy
     Dosage: UNK, ONE TABLET (81 MG) A DAY
     Route: 065
     Dates: start: 202308

REACTIONS (11)
  - Adverse event [Recovered/Resolved]
  - Abdominal discomfort [Not Recovered/Not Resolved]
  - Nausea [Not Recovered/Not Resolved]
  - Pain [Not Recovered/Not Resolved]
  - Chest discomfort [Not Recovered/Not Resolved]
  - Chest pain [Not Recovered/Not Resolved]
  - Rhinalgia [Not Recovered/Not Resolved]
  - Bacterial infection [Unknown]
  - Product dose omission issue [Unknown]
  - Dyspnoea [Not Recovered/Not Resolved]
  - Diarrhoea [Not Recovered/Not Resolved]

NARRATIVE: CASE EVENT DATE: 20230601
